FAERS Safety Report 6135602-8 (Version None)
Quarter: 2009Q1

REPORT INFORMATION
  Report Type: 
  Country: None (occurrence: None)
  Receive Date: 20090327
  Receipt Date: 20090319
  Transmission Date: 20090719
  Serious: Yes (Hospitalization, Other)
  Sender: FDA-Public Use
  Company Number: PHHY2009JP05750

PATIENT
  Sex: Male

DRUGS (9)
  1. FAMCICLOVIR [Suspect]
     Indication: HERPES ZOSTER
     Dosage: 1500MG PER DAY
     Route: 048
     Dates: start: 20081212, end: 20081219
  2. LEVOFLOXACIN [Concomitant]
     Indication: EYE DISORDER
     Dosage: UNK
     Dates: end: 20090101
  3. MECOBALAMIN [Concomitant]
     Dosage: UNK
     Dates: start: 20081212, end: 20081219
  4. ACETAMINOPHEN [Concomitant]
     Dosage: UNK
     Dates: start: 20081212, end: 20081219
  5. TEPRENONE [Concomitant]
     Dosage: UNK
     Dates: start: 20081212, end: 20081219
  6. MUCOSTA [Concomitant]
     Dosage: UNK
     Dates: start: 20081212, end: 20081219
  7. ZILDASAC [Concomitant]
     Dosage: UNK
     Dates: start: 20081212, end: 20081219
  8. FLUMETA PASTE [Concomitant]
     Dosage: UNK
     Dates: start: 20081212, end: 20081219
  9. KALLIDINOGENASE [Concomitant]

REACTIONS (13)
  - ALANINE AMINOTRANSFERASE INCREASED [None]
  - ASPARTATE AMINOTRANSFERASE INCREASED [None]
  - BLOOD LACTATE DEHYDROGENASE INCREASED [None]
  - DYSPHONIA [None]
  - EOSINOPHILIA [None]
  - EPIGLOTTIC OEDEMA [None]
  - ERYTHEMA MULTIFORME [None]
  - GENERALISED ERYTHEMA [None]
  - LEUKOCYTOSIS [None]
  - ORAL MUCOSA EROSION [None]
  - PHARYNGEAL OEDEMA [None]
  - PRURITUS GENERALISED [None]
  - RASH [None]
